FAERS Safety Report 9380023 (Version 1)
Quarter: 2013Q3

REPORT INFORMATION
  Report Type: Spontaneous
  Country: US (occurrence: US)
  Receive Date: 20130702
  Receipt Date: 20130702
  Transmission Date: 20140515
  Serious: No
  Sender: FDA-Public Use
  Company Number: US-PFIZER INC-2013193984

PATIENT
  Sex: Male

DRUGS (1)
  1. ALAVERT [Suspect]
     Dosage: 1 TABLET EVERY 16 HOUR

REACTIONS (2)
  - Nasal disorder [Unknown]
  - Throat irritation [Unknown]
